FAERS Safety Report 6316272-2 (Version None)
Quarter: 2009Q3

REPORT INFORMATION
  Report Type: 
  Country: None (occurrence: None)
  Receive Date: 20090820
  Receipt Date: 20090814
  Transmission Date: 20100115
  Serious: Yes (Other)
  Sender: FDA-Public Use
  Company Number: BE-AVENTIS-200918822GDDC

PATIENT

DRUGS (1)
  1. TAXOTERE [Suspect]
     Route: 042

REACTIONS (3)
  - DIARRHOEA [None]
  - MUSCLE CONTRACTIONS INVOLUNTARY [None]
  - NEUTROPENIA [None]
